FAERS Safety Report 11225648 (Version 2)
Quarter: 2016Q3

REPORT INFORMATION
  Report Type: Spontaneous
  Country: DK (occurrence: DK)
  Receive Date: 20150629
  Receipt Date: 20160729
  Transmission Date: 20161109
  Serious: Yes (Life-Threatening, Hospitalization)
  Sender: FDA-Public Use
  Company Number: DK-TEVA-572159ISR

PATIENT
  Age: 57 Year
  Sex: Male
  Weight: 90 kg

DRUGS (12)
  1. DOLOL RETARD UNO [Concomitant]
     Active Substance: TRAMADOL
     Dosage: 300 MILLIGRAM DAILY;
     Route: 065
  2. IBUMETIN [Concomitant]
     Active Substance: IBUPROFEN
     Dosage: 1200 MILLIGRAM DAILY;
     Route: 065
  3. PANODIL [Concomitant]
     Active Substance: ACETAMINOPHEN
     Dosage: 2 GRAM DAILY;
     Route: 065
  4. ISOSORBIDDINITRAT [Concomitant]
     Dosage: 60 MILLIGRAM DAILY;
     Route: 065
  5. LOSARTANKALIUM [Concomitant]
     Active Substance: LOSARTAN
     Indication: HYPERTENSION
     Dosage: 50 MILLIGRAM DAILY;
     Route: 048
     Dates: start: 20110601
  6. HJERTEMAGNYL [Concomitant]
     Active Substance: ASPIRIN\MAGNESIUM OXIDE
     Dosage: 75 MILLIGRAM DAILY;
     Route: 065
  7. VICTOZA [Concomitant]
     Active Substance: LIRAGLUTIDE
     Route: 065
  8. LOPID [Interacting]
     Active Substance: GEMFIBROZIL
     Indication: HYPERLIPIDAEMIA
     Dosage: 1200 MILLIGRAM DAILY; STRENGTH: 600 MG
     Route: 048
     Dates: start: 201106
  9. METFORMINHYDROCHLORID [Concomitant]
     Dosage: 1000 MILLIGRAM DAILY;
     Route: 065
  10. CIPROFLOXACIN ^HEXAL^ [Interacting]
     Active Substance: CIPROFLOXACIN
     Indication: PNEUMONIA
     Dosage: 1000 MILLIGRAM DAILY; STRENGTH: 500 MG
     Route: 048
     Dates: start: 20150424, end: 20150429
  11. SIMVASTATIN ^TEVA^ [Suspect]
     Active Substance: SIMVASTATIN
     Indication: HYPERLIPIDAEMIA
     Dosage: 60 MILLIGRAM DAILY; STRENGTH: 60 MG
     Route: 048
     Dates: start: 2011, end: 20150429
  12. CLORIOCARD [Concomitant]
     Route: 065

REACTIONS (11)
  - Aspartate aminotransferase increased [Recovering/Resolving]
  - Myalgia [Recovered/Resolved]
  - Rhabdomyolysis [Recovered/Resolved]
  - Abdominal pain [Recovered/Resolved]
  - Back pain [Recovered/Resolved]
  - Blood creatine phosphokinase increased [Recovering/Resolving]
  - Haematuria [Recovered/Resolved]
  - Myoglobin blood increased [Recovering/Resolving]
  - Drug interaction [Unknown]
  - Alanine aminotransferase increased [Recovering/Resolving]
  - Blood lactate dehydrogenase increased [Recovering/Resolving]

NARRATIVE: CASE EVENT DATE: 201504
